FAERS Safety Report 25383656 (Version 2)
Quarter: 2025Q2

REPORT INFORMATION
  Report Type: Report from Study
  Country: CA (occurrence: CA)
  Receive Date: 20250602
  Receipt Date: 20250611
  Transmission Date: 20250717
  Serious: Yes (Hospitalization, Other)
  Sender: TAKEDA
  Company Number: CA-TAKEDA-2025TUS050738

PATIENT
  Sex: Male

DRUGS (2)
  1. VEDOLIZUMAB [Suspect]
     Active Substance: VEDOLIZUMAB
     Indication: Crohn^s disease
  2. VEDOLIZUMAB [Suspect]
     Active Substance: VEDOLIZUMAB

REACTIONS (6)
  - Prostate infection [Recovered/Resolved]
  - Diabetes mellitus inadequate control [Recovered/Resolved]
  - Renal impairment [Recovered/Resolved]
  - Blood potassium increased [Recovered/Resolved]
  - Eating disorder [Recovered/Resolved]
  - Fatigue [Unknown]
